FAERS Safety Report 7455343-4 (Version None)
Quarter: 2011Q2

REPORT INFORMATION
  Report Type: 
  Country: None (occurrence: None)
  Receive Date: 20110503
  Receipt Date: 20110427
  Transmission Date: 20111010
  Serious: Yes (Other)
  Sender: FDA-Public Use
  Company Number: JP-PFIZER INC-2011091283

PATIENT
  Sex: Male

DRUGS (1)
  1. LIPITOR [Suspect]
     Dosage: 10 MG, UNK
     Route: 048

REACTIONS (2)
  - BLOOD POTASSIUM INCREASED [None]
  - GAMMA-GLUTAMYLTRANSFERASE INCREASED [None]
